FAERS Safety Report 25662504 (Version 1)
Quarter: 2025Q3

REPORT INFORMATION
  Report Type: Spontaneous
  Country: EU (occurrence: EU)
  Receive Date: 20250810
  Receipt Date: 20250810
  Transmission Date: 20251021
  Serious: Yes (Other)
  Sender: JOHNSON AND JOHNSON
  Company Number: EU-JNJFOC-20250810435

PATIENT
  Age: 26 Year
  Sex: Female

DRUGS (1)
  1. INFLIXIMAB [Suspect]
     Active Substance: INFLIXIMAB
     Indication: Crohn^s disease
     Route: 041
     Dates: start: 2014, end: 2017

REACTIONS (4)
  - Glomerulonephritis [Unknown]
  - Lupus-like syndrome [Unknown]
  - Vasculitis [Unknown]
  - Overdose [Unknown]
